FAERS Safety Report 26128484 (Version 2)
Quarter: 2025Q4

REPORT INFORMATION
  Report Type: Report from Study
  Country: MX (occurrence: MX)
  Receive Date: 20251207
  Receipt Date: 20251222
  Transmission Date: 20260117
  Serious: Yes (Hospitalization)
  Sender: NOVARTIS
  Company Number: MX-002147023-NVSC2025MX059396

PATIENT
  Age: 78 Year
  Sex: Female
  Weight: 47 kg

DRUGS (4)
  1. TASIGNA [Suspect]
     Active Substance: NILOTINIB
     Indication: Chronic myeloid leukaemia
     Dosage: 1 DOSAGE FORM (200 MG), Q12H
     Route: 048
     Dates: start: 20250214, end: 20250306
  2. TASIGNA [Suspect]
     Active Substance: NILOTINIB
     Dosage: 2 DOSAGE FORM (IN THE MORNING AND AT NIGHT)
     Route: 065
     Dates: start: 20250307, end: 20250401
  3. TASIGNA [Suspect]
     Active Substance: NILOTINIB
     Dosage: 3 DOSAGE FORM, QD
     Route: 048
     Dates: start: 20250402
  4. TASIGNA [Suspect]
     Active Substance: NILOTINIB
     Dosage: 2 DOSAGE FORM (IN THE MORNING AND AT NIGHT)
     Route: 048

REACTIONS (6)
  - Swelling face [Recovered/Resolved]
  - Swelling [Recovered/Resolved]
  - Peripheral swelling [Recovered/Resolved]
  - Pruritus [Recovered/Resolved]
  - Malaise [Recovered/Resolved]
  - Off label use [Not Recovered/Not Resolved]

NARRATIVE: CASE EVENT DATE: 20250321
